FAERS Safety Report 14378903 (Version 1)
Quarter: 2018Q1

REPORT INFORMATION
  Report Type: Spontaneous
  Country: US (occurrence: US)
  Receive Date: 20180112
  Receipt Date: 20180112
  Transmission Date: 20180509
  Serious: Yes (Other)
  Sender: FDA-Public Use
  Company Number: US-AMGEN-USASP2018003440

PATIENT
  Age: 72 Year
  Sex: Female

DRUGS (5)
  1. CALCIUM [Concomitant]
     Active Substance: CALCIUM
     Dosage: 600 MG, UNK
  2. PROLIA [Suspect]
     Active Substance: DENOSUMAB
     Indication: OSTEOPOROSIS
     Dosage: UNK
     Route: 065
  3. PROLIA [Suspect]
     Active Substance: DENOSUMAB
     Dosage: UNK
     Route: 065
     Dates: start: 20171205
  4. VITAMIN D [Concomitant]
     Active Substance: CHOLECALCIFEROL
  5. EXEMESTANE. [Concomitant]
     Active Substance: EXEMESTANE
     Dosage: 25 MG, QD

REACTIONS (10)
  - Dry skin [Unknown]
  - Arthralgia [Unknown]
  - Lip pain [Unknown]
  - Pruritus [Not Recovered/Not Resolved]
  - Oral herpes [Unknown]
  - Bone disorder [Unknown]
  - Breast cancer [Unknown]
  - Paraesthesia [Not Recovered/Not Resolved]
  - Bone pain [Unknown]
  - Rash [Not Recovered/Not Resolved]

NARRATIVE: CASE EVENT DATE: 20171208
